FAERS Safety Report 5679566-X (Version None)
Quarter: 2008Q1

REPORT INFORMATION
  Report Type: 
  Country: None (occurrence: None)
  Receive Date: 20080321
  Receipt Date: 20080307
  Transmission Date: 20080703
  Serious: Yes (Hospitalization)
  Sender: FDA-Public Use
  Company Number: 2008US000697

PATIENT
  Age: 39 Year
  Sex: Female

DRUGS (1)
  1. AMBISOME [Suspect]
     Indication: SOFT TISSUE INFECTION
     Dosage: 4.5 MG/KG, UID/QD, IV NOS
     Route: 042

REACTIONS (4)
  - AMPUTATION [None]
  - KIDNEY INFECTION [None]
  - PANCYTOPENIA [None]
  - SOFT TISSUE INFECTION [None]
